FAERS Safety Report 17021062 (Version 2)
Quarter: 2019Q4

REPORT INFORMATION
  Report Type: Spontaneous
  Country: JP (occurrence: JP)
  Receive Date: 20191112
  Receipt Date: 20191128
  Transmission Date: 20200122
  Serious: Yes (Hospitalization)
  Sender: FDA-Public Use
  Company Number: JP-REGULIS-2076726

PATIENT
  Age: 62 Year
  Sex: Male
  Weight: 39 kg

DRUGS (5)
  1. METHYLENE BLUE INTRAVENOUS INJECTION 50MG ^DAIICHI SANKYO^ [Suspect]
     Active Substance: METHYLENE BLUE
     Indication: METHAEMOGLOBINAEMIA
     Route: 042
     Dates: start: 20190213, end: 20190213
  2. MAGMITT [Concomitant]
     Active Substance: MAGNESIUM OXIDE
     Route: 065
  3. CLEVERIN [Suspect]
     Active Substance: CHLORINE DIOXIDE
     Route: 048
     Dates: start: 20190213
  4. FOLIAMIN [Concomitant]
     Active Substance: FOLIC ACID
     Route: 065
  5. E KEPPRA [Concomitant]
     Active Substance: LEVETIRACETAM
     Route: 065

REACTIONS (2)
  - White blood cell count decreased [Recovered/Resolved]
  - Haemolytic anaemia [Recovered/Resolved]

NARRATIVE: CASE EVENT DATE: 20190215
